FAERS Safety Report 9122703 (Version 2)
Quarter: 2013Q1

REPORT INFORMATION
  Report Type: Spontaneous
  Country: JP (occurrence: JP)
  Receive Date: 20130227
  Receipt Date: 20130314
  Transmission Date: 20140127
  Serious: Yes (Hospitalization)
  Sender: FDA-Public Use
  Company Number: JP-ABBOTT-13P-087-1054032-00

PATIENT
  Age: 25 Year
  Sex: Female

DRUGS (3)
  1. CLARITHROMYCIN [Suspect]
     Indication: COUGH
     Dates: start: 20070302
  2. PREDNISOLONE [Suspect]
     Indication: ASTHMA
     Dates: start: 20070303
  3. ANTITUSSIVE [Concomitant]
     Indication: COUGH
     Dates: start: 20070302

REACTIONS (2)
  - Pneumonia mycoplasmal [Recovered/Resolved]
  - Drug resistance [Recovered/Resolved]
